FAERS Safety Report 6102828-9 (Version None)
Quarter: 2009Q1

REPORT INFORMATION
  Report Type: 
  Country: None (occurrence: None)
  Receive Date: 20090304
  Receipt Date: 20090206
  Transmission Date: 20090719
  Serious: Yes (Hospitalization)
  Sender: FDA-Public Use
  Company Number: JP-GENENTECH-278462

PATIENT
  Sex: Male

DRUGS (10)
  1. AVASTIN [Suspect]
     Indication: RECTAL CANCER
     Dosage: 10 MG/KG, UNK
     Dates: start: 20070723, end: 20090120
  2. ELPLAT [Suspect]
     Indication: RECTAL CANCER
     Dosage: 85 MG/M2, UNK
     Route: 041
     Dates: start: 20070723, end: 20090120
  3. FLUOROURACIL [Suspect]
     Indication: RECTAL CANCER
     Dosage: 400 MG/M2, UNK
     Route: 042
     Dates: start: 20070723, end: 20090122
  4. CALCIUM LEVOFOLINATE [Suspect]
     Indication: RECTAL CANCER
     Dosage: 200 MG/M2, UNK
     Route: 041
     Dates: start: 20070723, end: 20090120
  5. IRINOTECAN HCL [Suspect]
     Indication: RECTAL CANCER
     Dosage: 130.7 MG/M2, UNK
     Route: 042
     Dates: start: 20080212, end: 20081117
  6. MARZULENE-S [Concomitant]
     Indication: DRUG USE FOR UNKNOWN INDICATION
     Dosage: UNK
     Dates: start: 20070717
  7. MIYA BM [Concomitant]
     Indication: DRUG USE FOR UNKNOWN INDICATION
     Dosage: UNK
     Dates: start: 20070717
  8. ALESION [Concomitant]
     Indication: DRUG USE FOR UNKNOWN INDICATION
     Dosage: UNK
     Dates: start: 20070808
  9. ETODOLAC [Concomitant]
     Indication: DRUG USE FOR UNKNOWN INDICATION
     Dosage: UNK
     Dates: start: 20070808
  10. LOXONIN [Concomitant]
     Indication: DRUG USE FOR UNKNOWN INDICATION
     Dosage: UNK
     Dates: start: 20070809

REACTIONS (2)
  - PNEUMONIA [None]
  - PNEUMOTHORAX [None]
